FAERS Safety Report 7001019-7 (Version None)
Quarter: 2010Q3

REPORT INFORMATION
  Report Type: 
  Country: None (occurrence: None)
  Receive Date: 20100920
  Receipt Date: 20080519
  Transmission Date: 20110219
  Serious: Yes (Other)
  Sender: FDA-Public Use
  Company Number: US-ASTRAZENECA-2006UW22822

PATIENT
  Age: 45 Year
  Sex: Male
  Weight: 68.5 kg

DRUGS (15)
  1. SEROQUEL [Suspect]
     Indication: DEPRESSION
     Route: 048
     Dates: start: 20000701, end: 20060101
  2. SEROQUEL [Suspect]
     Indication: SCHIZOPHRENIA
     Route: 048
     Dates: start: 20000701, end: 20060101
  3. SEROQUEL [Suspect]
     Indication: ANXIETY
     Route: 048
     Dates: start: 20000701, end: 20060101
  4. SEROQUEL [Suspect]
     Dosage: 25MG-400MG. AT NIGHT
     Route: 048
     Dates: start: 20001205
  5. SEROQUEL [Suspect]
     Dosage: 25MG-400MG. AT NIGHT
     Route: 048
     Dates: start: 20001205
  6. SEROQUEL [Suspect]
     Dosage: 25MG-400MG. AT NIGHT
     Route: 048
     Dates: start: 20001205
  7. ZYPREXA [Concomitant]
     Dosage: 10MG-15MG
     Dates: start: 20000309
  8. NEURONTIN [Concomitant]
     Dosage: 900MG-1800MG
     Dates: start: 20000309
  9. PAXIL [Concomitant]
     Dates: start: 20000309
  10. PROZAC [Concomitant]
     Route: 048
     Dates: start: 20010517
  11. RISPERIDONE [Concomitant]
     Dosage: 1MG-2MG
     Route: 048
     Dates: start: 20010517
  12. WELLBUTRIN SR [Concomitant]
     Dosage: 100MG-200MG
     Route: 048
     Dates: start: 20010517
  13. KLONOPIN [Concomitant]
     Route: 048
     Dates: start: 20010517
  14. ASPIRIN [Concomitant]
     Dates: start: 20040618
  15. EFFEXOR XR [Concomitant]
     Dates: start: 20040618

REACTIONS (3)
  - DIABETES MELLITUS [None]
  - HYPERGLYCAEMIA [None]
  - PANCREATITIS [None]
